FAERS Safety Report 9553560 (Version 1)
Quarter: 2013Q3

REPORT INFORMATION
  Report Type: Spontaneous
  Country: US (occurrence: None)
  Receive Date: 20130916
  Receipt Date: 20130916
  Transmission Date: 20140515
  Serious: Yes (Other)
  Sender: FDA-Public Use
  Company Number: JPI-P-019676

PATIENT
  Age: 41 Year
  Sex: Female
  Weight: 73.03 kg

DRUGS (10)
  1. XYREM [Suspect]
     Indication: FIBROMYALGIA
     Dosage: 4.5 GM (2.25 GM, 2 IN 1 D), ORAL
     Route: 048
     Dates: start: 20120203, end: 20120216
  2. DULOXETINE HYDROCHLORIDE [Concomitant]
  3. MULTIVITAMIN [Concomitant]
  4. HYDROXYCHLOROQUINE SULFATE [Concomitant]
  5. OMEGA-3 ACID ETHYL ESTERS [Concomitant]
  6. NEBIVILOL [Concomitant]
  7. HYDROCHLOROQUINE SULFATE (200 MILLIGRAM, TABLETS) [Concomitant]
  8. IBUPROFEN W/ FAMOTIDINE [Concomitant]
  9. LIDODERM (POULTICE OR PATCH) [Concomitant]
  10. GEMFIBROZIL [Concomitant]

REACTIONS (24)
  - Ankle fracture [None]
  - Fall [None]
  - Anxiety [None]
  - Thirst [None]
  - Libido decreased [None]
  - Feeling abnormal [None]
  - Headache [None]
  - Hunger [None]
  - Hyperhidrosis [None]
  - Diarrhoea [None]
  - Nausea [None]
  - Vomiting [None]
  - Neck injury [None]
  - Back injury [None]
  - Respiratory rate decreased [None]
  - Somnambulism [None]
  - Back pain [None]
  - Neck pain [None]
  - Arthralgia [None]
  - Cough [None]
  - Urinary tract infection [None]
  - Joint stiffness [None]
  - Chest pain [None]
  - Tachycardia [None]
